FAERS Safety Report 15657435 (Version 1)
Quarter: 2018Q4

REPORT INFORMATION
  Report Type: Spontaneous
  Country: US (occurrence: US)
  Receive Date: 20181126
  Receipt Date: 20181126
  Transmission Date: 20190205
  Serious: Yes (Hospitalization)
  Sender: FDA-Public Use
  Company Number: US-BIOGEN-2015BI116130

PATIENT
  Age: 57 Year
  Sex: Male

DRUGS (1)
  1. PLEGRIDY [Suspect]
     Active Substance: PEGINTERFERON BETA-1A
     Indication: MULTIPLE SCLEROSIS
     Route: 030
     Dates: start: 20150809, end: 20150809

REACTIONS (9)
  - Headache [Recovered/Resolved]
  - Erythema [Unknown]
  - Blood pressure increased [Recovered/Resolved]
  - Cellulitis [Recovered/Resolved]
  - Peripheral swelling [Unknown]
  - Sepsis [Not Recovered/Not Resolved]
  - Tremor [Recovered/Resolved]
  - Injection site erythema [Not Recovered/Not Resolved]
  - Muscular weakness [Not Recovered/Not Resolved]

NARRATIVE: CASE EVENT DATE: 20150810
